FAERS Safety Report 14513998 (Version 1)
Quarter: 2018Q1

REPORT INFORMATION
  Report Type: Spontaneous
  Country: US (occurrence: US)
  Receive Date: 20180209
  Receipt Date: 20180209
  Transmission Date: 20180509
  Serious: No
  Sender: FDA-Public Use
  Company Number: US-SA-2017SA243365

PATIENT
  Age: 76 Year
  Sex: Male

DRUGS (1)
  1. XYZAL ALLERGY 24HR [Suspect]
     Active Substance: LEVOCETIRIZINE DIHYDROCHLORIDE
     Route: 048

REACTIONS (6)
  - Cough [Unknown]
  - Drug ineffective [Unknown]
  - Sneezing [Unknown]
  - Product blister packaging issue [Unknown]
  - Sinus disorder [Unknown]
  - Nasal pruritus [Unknown]
